FAERS Safety Report 9204876 (Version 2)
Quarter: 2013Q2

REPORT INFORMATION
  Report Type: Spontaneous
  Country: US (occurrence: US)
  Receive Date: 20130402
  Receipt Date: 20130404
  Transmission Date: 20140414
  Serious: Yes (Other)
  Sender: FDA-Public Use
  Company Number: US-BAYER-2013-039011

PATIENT
  Age: 70 Year
  Sex: Male
  Weight: 141 kg

DRUGS (5)
  1. DOMEBORO POWDER PACKETS [Suspect]
     Dosage: 1 DF, UNK
     Route: 048
     Dates: start: 20130325, end: 20130326
  2. LIPITOR [Concomitant]
  3. AZTREONAM [Concomitant]
  4. THIAMINE [Concomitant]
  5. COUMADIN [Concomitant]

REACTIONS (7)
  - Incorrect route of drug administration [Recovered/Resolved]
  - White blood cell count increased [None]
  - International normalised ratio increased [None]
  - Ileus [None]
  - Gastrointestinal haemorrhage [None]
  - International normalised ratio increased [None]
  - Abdominal pain [Recovered/Resolved]
